FAERS Safety Report 11145199 (Version 3)
Quarter: 2015Q3

REPORT INFORMATION
  Report Type: Report from Study
  Country: BR (occurrence: BR)
  Receive Date: 20150528
  Receipt Date: 20150708
  Transmission Date: 20151125
  Serious: Yes (Other)
  Sender: FDA-Public Use
  Company Number: PHHY2015BR060425

PATIENT
  Sex: Female
  Weight: 70 kg

DRUGS (3)
  1. EXELON PATCH [Suspect]
     Active Substance: RIVASTIGMINE
     Indication: DEMENTIA ALZHEIMER^S TYPE
     Dosage: PATCH 5 (CM2)
     Route: 062
  2. EXELON PATCH [Suspect]
     Active Substance: RIVASTIGMINE
     Dosage: 9.5 MG/5 CM?
     Route: 062
  3. EXELON PATCH [Suspect]
     Active Substance: RIVASTIGMINE
     Dosage: PATCH 10 (CM2)
     Route: 062

REACTIONS (8)
  - Memory impairment [Unknown]
  - Hypoacusis [Unknown]
  - Blood glucose increased [Unknown]
  - Agitation [Unknown]
  - Nail disorder [Unknown]
  - Alopecia [Unknown]
  - Pruritus [Unknown]
  - Nervousness [Unknown]
